FAERS Safety Report 21047481 (Version 3)
Quarter: 2022Q3

REPORT INFORMATION
  Report Type: Spontaneous
  Country: JP (occurrence: JP)
  Receive Date: 20220706
  Receipt Date: 20220815
  Transmission Date: 20221027
  Serious: No
  Sender: FDA-Public Use
  Company Number: JP-JNJFOC-20220645901

PATIENT
  Age: 81 Year
  Sex: Female

DRUGS (1)
  1. SIMPONI [Suspect]
     Active Substance: GOLIMUMAB
     Indication: Rheumatoid arthritis
     Dosage: STRENGTH: 50.00 MG / 0.50 ML
     Route: 058
     Dates: start: 20220620

REACTIONS (3)
  - Device deployment issue [Recovered/Resolved]
  - Injury associated with device [Unknown]
  - Needle issue [Unknown]

NARRATIVE: CASE EVENT DATE: 20220620
